FAERS Safety Report 10382664 (Version 1)
Quarter: 2014Q3

REPORT INFORMATION
  Report Type: Spontaneous
  Country: US (occurrence: US)
  Receive Date: 20140813
  Receipt Date: 20140813
  Transmission Date: 20150326
  Serious: No
  Sender: FDA-Public Use
  Company Number: US-SA-2014SA054405

PATIENT
  Age: 58 Year
  Sex: Male
  Weight: 85.5 kg

DRUGS (8)
  1. RENVELA [Concomitant]
     Active Substance: SEVELAMER CARBONATE
     Dosage: 800MG TID MEALS AND WITH SNACKS
     Dates: start: 1999
  2. MULTAQ [Interacting]
     Active Substance: DRONEDARONE
     Indication: ATRIAL FIBRILLATION
     Dosage: 200 MG BID WITH MEALS
     Route: 048
     Dates: start: 20140416
  3. VENOFER [Concomitant]
     Active Substance: IRON SUCROSE
     Dosage: 20MG VIA IV Q MONTH PRN
     Route: 042
  4. ERYTHROPOIETIN [Concomitant]
     Active Substance: ERYTHROPOIETIN
     Dosage: 10,000 UNIT UNDER THE SKIN TWICE A WEEK
  5. MULTAQ [Suspect]
     Active Substance: DRONEDARONE
     Indication: ATRIAL FIBRILLATION
     Dosage: 400 MG BID WITH MEALS
     Route: 048
     Dates: start: 20140411, end: 20140415
  6. SENSIPAR [Concomitant]
     Active Substance: CINACALCET HYDROCHLORIDE
     Dates: start: 1999
  7. OMEPRAZOLE. [Interacting]
     Active Substance: OMEPRAZOLE
     Indication: HYPERCHLORHYDRIA
     Route: 048
     Dates: start: 20140418, end: 20140420
  8. PHOSLO [Concomitant]
     Active Substance: CALCIUM ACETATE
     Dosage: WITH RENVELA WITH MEALS DEPEND ON FOOD HE EAT TID WITH SNACK
     Dates: start: 1995

REACTIONS (8)
  - Hyperchlorhydria [Unknown]
  - Dyspnoea [Recovered/Resolved]
  - Drug interaction [Recovered/Resolved]
  - Asthenia [Not Recovered/Not Resolved]
  - Dizziness [Recovered/Resolved]
  - Food intolerance [Recovered/Resolved]
  - Gait disturbance [Recovered/Resolved]
  - Blood pressure decreased [Not Recovered/Not Resolved]

NARRATIVE: CASE EVENT DATE: 201404
